FAERS Safety Report 24424037 (Version 1)
Quarter: 2024Q4

REPORT INFORMATION
  Report Type: Spontaneous
  Country: US (occurrence: US)
  Receive Date: 20241010
  Receipt Date: 20241010
  Transmission Date: 20250115
  Serious: No
  Sender: BAYER
  Company Number: US-BAYER-2024A142662

PATIENT
  Age: 70 Year
  Sex: Male

DRUGS (2)
  1. STIVARGA [Suspect]
     Active Substance: REGORAFENIB MONOHYDRATE
     Dosage: UNK
  2. ALCOHOL [Concomitant]
     Active Substance: ALCOHOL
     Dosage: UNK

REACTIONS (6)
  - Feeling abnormal [None]
  - Gingival pain [None]
  - Pain in extremity [None]
  - Decreased appetite [None]
  - Chest pain [None]
  - Malaise [None]

NARRATIVE: CASE EVENT DATE: 20241003
